FAERS Safety Report 26023954 (Version 2)
Quarter: 2025Q4

REPORT INFORMATION
  Report Type: Report from Study
  Country: US (occurrence: US)
  Receive Date: 20251111
  Receipt Date: 20251114
  Transmission Date: 20260118
  Serious: Yes (Hospitalization, Other)
  Sender: BRISTOL-MYERS SQUIBB COMPANY
  Company Number: US-BRISTOL-MYERS SQUIBB COMPANY-2025-132317

PATIENT
  Age: 68 Year
  Sex: Male

DRUGS (29)
  1. CAMZYOS [Suspect]
     Active Substance: MAVACAMTEN
     Indication: Hypertrophic cardiomyopathy
     Route: 048
     Dates: start: 20230102, end: 20230221
  2. CAMZYOS [Suspect]
     Active Substance: MAVACAMTEN
     Route: 048
     Dates: start: 20230222, end: 20230320
  3. CAMZYOS [Suspect]
     Active Substance: MAVACAMTEN
     Route: 048
     Dates: start: 20230321, end: 20251016
  4. CAMZYOS [Suspect]
     Active Substance: MAVACAMTEN
     Route: 048
     Dates: start: 20251028
  5. ALLOPURINOL [Concomitant]
     Active Substance: ALLOPURINOL
     Indication: Product used for unknown indication
     Dosage: QD
     Route: 048
     Dates: start: 20230131
  6. ASPIRIN [Concomitant]
     Active Substance: ASPIRIN
     Indication: Product used for unknown indication
     Dosage: QD
     Route: 048
     Dates: start: 20160720
  7. AZITHROMYCIN [Concomitant]
     Active Substance: AZITHROMYCIN
     Indication: Antibiotic prophylaxis
     Dosage: PRN
     Route: 048
     Dates: start: 20231108, end: 20240422
  8. DILTIAZEM [Concomitant]
     Active Substance: DILTIAZEM
     Indication: Product used for unknown indication
     Route: 048
     Dates: start: 20151118
  9. DOXAZOSIN [Concomitant]
     Active Substance: DOXAZOSIN MESYLATE
     Indication: Hypertension
     Route: 048
     Dates: start: 20170603, end: 20220411
  10. DOXAZOSIN [Concomitant]
     Active Substance: DOXAZOSIN MESYLATE
     Route: 048
     Dates: start: 20220411, end: 20230221
  11. FUROSEMIDE [Concomitant]
     Active Substance: FUROSEMIDE
     Indication: Hypervolaemia
     Route: 048
     Dates: start: 20220120, end: 20230410
  12. FUROSEMIDE [Concomitant]
     Active Substance: FUROSEMIDE
     Route: 048
     Dates: start: 20230411, end: 20230517
  13. FUROSEMIDE [Concomitant]
     Active Substance: FUROSEMIDE
     Route: 048
     Dates: start: 20230508, end: 20240122
  14. FUROSEMIDE [Concomitant]
     Active Substance: FUROSEMIDE
     Dosage: ONCE EVERY OTHER DAY
     Route: 048
     Dates: start: 20240124, end: 20240421
  15. FUROSEMIDE [Concomitant]
     Active Substance: FUROSEMIDE
     Dosage: PRN
     Route: 048
     Dates: start: 20240422, end: 20240607
  16. FUROSEMIDE [Concomitant]
     Active Substance: FUROSEMIDE
     Dosage: ONCE EVERY OTHER DAY
     Route: 048
  17. KLOR-CON M20 [Concomitant]
     Active Substance: POTASSIUM CHLORIDE
     Indication: Supplementation therapy
     Route: 048
     Dates: start: 20160720, end: 20240422
  18. LIDOCAINE [Concomitant]
     Active Substance: LIDOCAINE
     Indication: Lumbar radiculopathy
     Dosage: PRN
     Dates: start: 20240702, end: 20240820
  19. PRAVASTATIN [Concomitant]
     Active Substance: PRAVASTATIN
     Indication: Hyperlipidaemia
     Route: 048
     Dates: start: 20160720, end: 20220515
  20. PRAVASTATIN [Concomitant]
     Active Substance: PRAVASTATIN
     Dosage: QD
     Route: 048
  21. PREDNISONE [Concomitant]
     Active Substance: PREDNISONE
     Indication: Product used for unknown indication
     Route: 048
     Dates: start: 20230522, end: 20240124
  22. SERTRALINE [Concomitant]
     Active Substance: SERTRALINE HYDROCHLORIDE
     Indication: Product used for unknown indication
     Route: 048
     Dates: start: 20220201
  23. METRONIDAZOLE [Concomitant]
     Active Substance: METRONIDAZOLE
     Indication: Bacterial infection
     Route: 042
     Dates: start: 20251020
  24. LEVOFLOXACIN [Concomitant]
     Active Substance: LEVOFLOXACIN
     Indication: Gastrointestinal disorder
     Route: 042
     Dates: start: 20251016, end: 20251019
  25. LEVOFLOXACIN [Concomitant]
     Active Substance: LEVOFLOXACIN
     Indication: Respiratory disorder
     Route: 042
     Dates: start: 20251020, end: 20251020
  26. LEVOFLOXACIN [Concomitant]
     Active Substance: LEVOFLOXACIN
     Dosage: ONCE
     Route: 042
     Dates: start: 20251022, end: 20251026
  27. MEROPENEM [Concomitant]
     Active Substance: MEROPENEM
     Indication: Pyrexia
     Route: 042
     Dates: start: 20251026
  28. MEROPENEM [Concomitant]
     Active Substance: MEROPENEM
     Indication: Infection
  29. MICAFUNGIN [Concomitant]
     Active Substance: MICAFUNGIN SODIUM
     Indication: Systemic candida
     Route: 042
     Dates: start: 20251028

REACTIONS (5)
  - Abdominal incarcerated hernia [Recovered/Resolved with Sequelae]
  - Loss of consciousness [Recovered/Resolved]
  - Postoperative respiratory distress [Recovered/Resolved]
  - Leukocytosis [Not Recovered/Not Resolved]
  - Vomiting [Not Recovered/Not Resolved]

NARRATIVE: CASE EVENT DATE: 20250829
